FAERS Safety Report 21760795 (Version 1)
Quarter: 2022Q4

REPORT INFORMATION
  Report Type: Report from Study
  Country: CA (occurrence: CA)
  Receive Date: 20221221
  Receipt Date: 20221221
  Transmission Date: 20230112
  Serious: Yes (Other)
  Sender: FDA-Public Use
  Company Number: CA-GLAXOSMITHKLINE-CA2022188628

PATIENT

DRUGS (1)
  1. MEPOLIZUMAB [Suspect]
     Active Substance: MEPOLIZUMAB
     Indication: Asthma
     Dosage: 100 MG EVERY 4 WEEKS
     Route: 058
     Dates: start: 20221106

REACTIONS (4)
  - Syncope [Unknown]
  - Headache [Unknown]
  - Eye pain [Unknown]
  - Dizziness [Unknown]

NARRATIVE: CASE EVENT DATE: 20221112
